FAERS Safety Report 8479642 (Version 2)
Quarter: 2012Q4

REPORT INFORMATION
  Report Type: 
  Country: JP (occurrence: JP)
  Receive Date: 20120328
  Receipt Date: 20121017
  Transmission Date: 20130627
  Serious: Yes (Life-Threatening, Disabling)
  Sender: FDA-Public Use
  Company Number: JP-GE HEALTHCARE MEDICAL DIAGNOSTICS-OSCN-NO-0705S-0215

PATIENT
  Age: 43 None
  Sex: Male

DRUGS (4)
  1. OMNISCAN [Suspect]
     Indication: RENAL TRANSPLANT
     Route: 042
     Dates: start: 20000718, end: 20000718
  2. OMNISCAN [Suspect]
     Indication: ANASTOMOTIC STENOSIS
  3. GADOPENTETATE DIMEGLUMINE (MAGNEVIST) [Concomitant]
     Indication: INTRACRANIAL ANEURYSM
     Route: 042
     Dates: start: 20010618, end: 20010618
  4. MULTIPLE UNSPECIFIED DRUGS [Concomitant]

REACTIONS (16)
  - Nephrogenic systemic fibrosis [Not Recovered/Not Resolved]
  - Oedema peripheral [Not Recovered/Not Resolved]
  - Feeling hot [Not Recovered/Not Resolved]
  - Sclerema [Not Recovered/Not Resolved]
  - Joint contracture [Not Recovered/Not Resolved]
  - Muscular weakness [Not Recovered/Not Resolved]
  - Pain [Not Recovered/Not Resolved]
  - Gait disturbance [Not Recovered/Not Resolved]
  - Pain in extremity [Not Recovered/Not Resolved]
  - Skin induration [Not Recovered/Not Resolved]
  - Joint range of motion decreased [Not Recovered/Not Resolved]
  - Morphoea [Not Recovered/Not Resolved]
  - Skin disorder [Not Recovered/Not Resolved]
  - Skin discolouration [Not Recovered/Not Resolved]
  - Calcinosis [Not Recovered/Not Resolved]
  - Arteriovenous fistula site complication [Not Recovered/Not Resolved]
